FAERS Safety Report 6356306-2 (Version None)
Quarter: 2009Q3

REPORT INFORMATION
  Report Type: 
  Country: None (occurrence: None)
  Receive Date: 20090915
  Receipt Date: 20090911
  Transmission Date: 20100115
  Serious: Yes (Other)
  Sender: FDA-Public Use
  Company Number: JP-BAYER-200912685BYL

PATIENT
  Age: 26 Year
  Sex: Female
  Weight: 53 kg

DRUGS (10)
  1. FLUDARA [Suspect]
     Indication: APLASTIC ANAEMIA
     Dosage: UNIT DOSE: 50 MG
     Route: 042
     Dates: start: 20080814, end: 20080817
  2. CYCLOPHOSPHAMIDE [Suspect]
     Indication: ALLOGENIC BONE MARROW TRANSPLANTATION THERAPY
     Route: 042
     Dates: start: 20080814, end: 20080817
  3. LYMPHOGLOBULINE [Concomitant]
     Indication: APLASTIC ANAEMIA
     Route: 042
     Dates: start: 20080814, end: 20080817
  4. SANDIMMUNE [Concomitant]
     Indication: PROPHYLAXIS AGAINST GRAFT VERSUS HOST DISEASE
     Route: 042
     Dates: start: 20080818, end: 20080916
  5. METHOTREXATE [Concomitant]
     Indication: PROPHYLAXIS AGAINST GRAFT VERSUS HOST DISEASE
     Route: 042
     Dates: start: 20080820, end: 20080820
  6. METHOTREXATE [Concomitant]
     Route: 042
     Dates: start: 20080822, end: 20080825
  7. NEORAL [Concomitant]
     Indication: PROPHYLAXIS AGAINST GRAFT VERSUS HOST DISEASE
     Route: 048
     Dates: start: 20080917
  8. DENOSINE [Concomitant]
     Indication: INFECTION PROPHYLAXIS
     Route: 042
     Dates: start: 20080928, end: 20081010
  9. CONCENTRATED RED CELLS [Concomitant]
     Indication: PACKED RED BLOOD CELL TRANSFUSION
     Route: 042
     Dates: start: 20080815, end: 20080831
  10. PLATELETS [Concomitant]
     Indication: PLATELET TRANSFUSION
     Route: 042
     Dates: start: 20080814, end: 20080906

REACTIONS (3)
  - CHRONIC GRAFT VERSUS HOST DISEASE [None]
  - LIVER DISORDER [None]
  - PLATELET COUNT DECREASED [None]
